FAERS Safety Report 7340813-X (Version None)
Quarter: 2011Q1

REPORT INFORMATION
  Report Type: 
  Country: None (occurrence: None)
  Receive Date: 20110228
  Receipt Date: 20110217
  Transmission Date: 20110831
  Serious: Yes (Death)
  Sender: FDA-Public Use
  Company Number: AE11-034-3

PATIENT
  Age: 51 Year
  Sex: Male

DRUGS (1)
  1. ACETAMINOPHEN AND OXYCODONE HCL [Suspect]

REACTIONS (2)
  - RESPIRATORY ARREST [None]
  - CARDIAC ARREST [None]
